FAERS Safety Report 13603368 (Version 1)
Quarter: 2017Q2

REPORT INFORMATION
  Report Type: Spontaneous
  Country: US (occurrence: US)
  Receive Date: 20170601
  Receipt Date: 20170601
  Transmission Date: 20170912
  Serious: No
  Sender: FDA-Public Use
  Company Number: US-OTSUKA-2017_000843

PATIENT
  Age: 66 Year
  Sex: Female

DRUGS (3)
  1. SAMSCA [Suspect]
     Dosage: UNK, TIW
     Route: 065
  2. SAMSCA [Suspect]
     Indication: HYPONATRAEMIA
     Dosage: 15 MG, 5 TIMES PER WEEK
     Route: 048
     Dates: start: 20161201
  3. SAMSCA [Suspect]
     Dosage: UNK, QD
     Route: 065

REACTIONS (4)
  - Muscle spasms [Not Recovered/Not Resolved]
  - Pain in extremity [Not Recovered/Not Resolved]
  - Inappropriate schedule of drug administration [Unknown]
  - Incorrect drug administration duration [Unknown]

NARRATIVE: CASE EVENT DATE: 20161201
